FAERS Safety Report 10865770 (Version 1)
Quarter: 2015Q1

REPORT INFORMATION
  Report Type: Spontaneous
  Country: US (occurrence: US)
  Receive Date: 20150224
  Receipt Date: 20150224
  Transmission Date: 20150721
  Serious: No
  Sender: FDA-Public Use
  Company Number: US-GLAXOSMITHKLINE-US2015GSK024073

PATIENT
  Sex: Female

DRUGS (1)
  1. VOTRIENT [Suspect]
     Active Substance: PAZOPANIB HYDROCHLORIDE
     Indication: PHARYNGEAL CANCER
     Dosage: 800 MG, QD
     Route: 048
     Dates: start: 20150115, end: 20150217

REACTIONS (4)
  - Pain [Unknown]
  - Myalgia [Unknown]
  - Back disorder [Unknown]
  - Asthenia [Unknown]
